FAERS Safety Report 17393509 (Version 1)
Quarter: 2020Q1

REPORT INFORMATION
  Report Type: Spontaneous
  Country: US (occurrence: US)
  Receive Date: 20200208
  Receipt Date: 20200208
  Transmission Date: 20200409
  Serious: No
  Sender: FDA-Public Use
  Company Number: US-TEVA-2020-US-1182119

PATIENT

DRUGS (1)
  1. METRONIDAZOLE. [Suspect]
     Active Substance: METRONIDAZOLE
     Dosage: 500 MG

REACTIONS (5)
  - Product solubility abnormal [Unknown]
  - Product substitution issue [Unknown]
  - Product taste abnormal [Unknown]
  - Product residue present [Unknown]
  - Cough [Unknown]
